FAERS Safety Report 11558290 (Version 3)
Quarter: 2015Q4

REPORT INFORMATION
  Report Type: Spontaneous
  Country: IT (occurrence: IT)
  Receive Date: 20150928
  Receipt Date: 20151119
  Transmission Date: 20160304
  Serious: Yes (Other)
  Sender: FDA-Public Use
  Company Number: IT-ROCHE-1637937

PATIENT
  Age: 11 Year
  Sex: Male

DRUGS (1)
  1. ROCEFIN [Suspect]
     Active Substance: CEFTRIAXONE SODIUM
     Indication: LYME DISEASE
     Dosage: 1G/10ML 1 VIAL POWDER + 1 X 10 ML VIAL SOLVENT
     Route: 042
     Dates: start: 20150810, end: 20150910

REACTIONS (2)
  - Biliary colic [Recovered/Resolved]
  - Bile duct stone [Recovered/Resolved]

NARRATIVE: CASE EVENT DATE: 20150911
